FAERS Safety Report 18450425 (Version 1)
Quarter: 2020Q4

REPORT INFORMATION
  Report Type: Spontaneous
  Country: CA (occurrence: CA)
  Receive Date: 20201102
  Receipt Date: 20201102
  Transmission Date: 20210114
  Serious: Yes (Hospitalization)
  Sender: FDA-Public Use
  Company Number: CA-ORION CORPORATION ORION PHARMA-20_00011535

PATIENT
  Age: 64 Year
  Sex: Female

DRUGS (1)
  1. METHOTREXATE (TRADE NAME UNKNOWN) [Suspect]
     Active Substance: METHOTREXATE
     Indication: ARTHRITIS
     Route: 065

REACTIONS (7)
  - Visual impairment [Recovering/Resolving]
  - Cold sweat [Recovering/Resolving]
  - Mobility decreased [Recovering/Resolving]
  - Speech disorder [Recovering/Resolving]
  - Headache [Recovering/Resolving]
  - Vomiting [Unknown]
  - Parosmia [Recovering/Resolving]
